FAERS Safety Report 16728526 (Version 2)
Quarter: 2019Q3

REPORT INFORMATION
  Report Type: Spontaneous
  Country: US (occurrence: US)
  Receive Date: 20190822
  Receipt Date: 20190916
  Transmission Date: 20191005
  Serious: Yes (Other)
  Sender: FDA-Public Use
  Company Number: US-TERSERA THERAPEUTICS LLC-2019TRS001537

PATIENT

DRUGS (3)
  1. PRIALT [Suspect]
     Active Substance: ZICONOTIDE ACETATE
     Indication: PAIN
     Dosage: UNK
     Route: 037
     Dates: start: 201904, end: 201905
  2. BUPIVACAINE. [Suspect]
     Active Substance: BUPIVACAINE
     Indication: PAIN
     Dosage: UNK
     Route: 065
  3. DILAUDID [Suspect]
     Active Substance: HYDROMORPHONE HYDROCHLORIDE
     Indication: PAIN
     Dosage: UNK
     Route: 065

REACTIONS (21)
  - Off label use [Unknown]
  - Face injury [Unknown]
  - Nightmare [Recovered/Resolved]
  - Parosmia [Recovered/Resolved]
  - Memory impairment [Recovered/Resolved]
  - Syncope [Unknown]
  - Retching [Recovered/Resolved]
  - Muscle spasms [Recovered/Resolved]
  - Weight decreased [Recovered/Resolved]
  - Depersonalisation/derealisation disorder [Recovered/Resolved]
  - Hypersensitivity [Not Recovered/Not Resolved]
  - Hallucination [Unknown]
  - Vomiting [Recovered/Resolved]
  - Respiratory arrest [Recovered/Resolved]
  - Hypersomnia [Recovered/Resolved]
  - Cyanosis [Recovered/Resolved]
  - Dysphemia [Unknown]
  - Eating disorder [Recovered/Resolved]
  - Diarrhoea [Recovered/Resolved]
  - Muscle twitching [Not Recovered/Not Resolved]
  - Sleep talking [Recovered/Resolved]

NARRATIVE: CASE EVENT DATE: 2019
